FAERS Safety Report 4727220-0 (Version None)
Quarter: 2005Q3

REPORT INFORMATION
  Report Type: 
  Country: None (occurrence: None)
  Receive Date: 20050726
  Receipt Date: 20040707
  Transmission Date: 20060218
  Serious: Yes (Hospitalization)
  Sender: FDA-Public Use
  Company Number: 04LEB0151 193

PATIENT
  Age: 66 Year
  Sex: Male

DRUGS (4)
  1. AGGRASTAT [Suspect]
     Indication: ANGINA UNSTABLE
     Dosage: 1/2 THE USUAL DOSE (1 X), INJECTION
     Dates: start: 20040623, end: 20040624
  2. ASPIRIN [Concomitant]
  3. HEPARIN-FRACTION, SODIUM SALT [Concomitant]
  4. GLYCERYL TRINTRATE [Concomitant]

REACTIONS (2)
  - EPISTAXIS [None]
  - INJECTION SITE HAEMORRHAGE [None]
